FAERS Safety Report 6464650-3 (Version None)
Quarter: 2009Q4

REPORT INFORMATION
  Report Type: 
  Country: None (occurrence: None)
  Receive Date: 20091201
  Receipt Date: 20091123
  Transmission Date: 20100525
  Serious: Yes (Hospitalization, Other)
  Sender: FDA-Public Use
  Company Number: ES-BRISTOL-MYERS SQUIBB COMPANY-14869200

PATIENT
  Age: 43 Year
  Sex: Female

DRUGS (6)
  1. DOXORUBICIN HCL [Suspect]
     Indication: BREAST CANCER
     Dates: start: 20051001, end: 20060101
  2. WARFARIN SODIUM [Suspect]
  3. TRASTUZUMAB [Suspect]
     Indication: BREAST CANCER
     Dates: start: 20060301, end: 20061001
  4. LOW MOLECULAR WEIGHT HEPARINS [Suspect]
     Indication: ANTICOAGULANT THERAPY
     Route: 058
  5. ASPIRIN [Suspect]
     Indication: ANTICOAGULANT THERAPY
  6. DIPYRIDAMOLE [Suspect]
     Indication: ANTICOAGULANT THERAPY

REACTIONS (2)
  - CARDIAC FAILURE [None]
  - TRANSIENT ISCHAEMIC ATTACK [None]
